FAERS Safety Report 6100534-8 (Version None)
Quarter: 2009Q1

REPORT INFORMATION
  Report Type: 
  Country: None (occurrence: None)
  Receive Date: 20090227
  Receipt Date: 20090227
  Transmission Date: 20090719
  Serious: Yes (Life-Threatening, Hospitalization, Disabling)
  Sender: FDA-Public Use
  Company Number: None

PATIENT
  Age: 56 Year
  Sex: Female
  Weight: 55 kg

DRUGS (1)
  1. MAROVIROC 150 MG PFIZER [Suspect]
     Indication: HIV INFECTION
     Dosage: 150 MG BID PO
     Route: 048
     Dates: start: 20080101, end: 20090225

REACTIONS (3)
  - CARDIAC ANEURYSM [None]
  - CARDIAC PSEUDOANEURYSM [None]
  - CARDIOGENIC SHOCK [None]
